FAERS Safety Report 4523016-3 (Version None)
Quarter: 2004Q4

REPORT INFORMATION
  Report Type: 
  Country: None (occurrence: None)
  Receive Date: 20041208
  Receipt Date: 20041125
  Transmission Date: 20050328
  Serious: Yes (Hospitalization)
  Sender: FDA-Public Use
  Company Number: 2004091819

PATIENT
  Age: 46 Year
  Sex: Female
  Weight: 55 kg

DRUGS (10)
  1. AZITHROMYCIN [Suspect]
     Indication: PYREXIA
     Dosage: 500 MG (250 MG, 2 IN 1 D), ORAL
     Route: 048
     Dates: start: 20041025
  2. SULFASALAZINE [Suspect]
     Indication: COLITIS
     Dosage: 1500 MG (500 MG, 3 IN 1 D), ORAL
     Route: 048
     Dates: start: 20040924
  3. ALL OTHER THERAPEUTIC PRODUCTS [Concomitant]
  4. FLEROXACIN (FLEROXACIN) [Concomitant]
  5. DIPYRONE TAB [Concomitant]
  6. KYORIN AP 2 (CAFFEINE, SIMETRIDE) [Concomitant]
  7. CLEMASTNE FUMARATE (CLEMASTINE FUMARATE) [Concomitant]
  8. TEPRENONE (TEPRENONE) [Concomitant]
  9. SOFALCONE (SOFALCONE) [Concomitant]
  10. POVIDONE IODINE [Concomitant]

REACTIONS (26)
  - ALANINE AMINOTRANSFERASE INCREASED [None]
  - APHTHOUS STOMATITIS [None]
  - ASPARTATE AMINOTRANSFERASE INCREASED [None]
  - BLISTER [None]
  - BLOOD ALKALINE PHOSPHATASE INCREASED [None]
  - BLOOD LACTATE DEHYDROGENASE INCREASED [None]
  - C-REACTIVE PROTEIN INCREASED [None]
  - DRUG ERUPTION [None]
  - DRY SKIN [None]
  - ELECTROCARDIOGRAM ABNORMAL [None]
  - ENANTHEMA [None]
  - EXANTHEM [None]
  - FEELING HOT [None]
  - GAMMA-GLUTAMYLTRANSFERASE INCREASED [None]
  - GENERALISED ERYTHEMA [None]
  - GENERALISED OEDEMA [None]
  - HEPATIC FUNCTION ABNORMAL [None]
  - HYPERSENSITIVITY [None]
  - INFLAMMATION [None]
  - PRURITUS GENERALISED [None]
  - PYREXIA [None]
  - RASH GENERALISED [None]
  - RED BLOOD CELL COUNT INCREASED [None]
  - SKIN INDURATION [None]
  - VIRAL INFECTION [None]
  - WHITE BLOOD CELL COUNT INCREASED [None]
